FAERS Safety Report 8793746 (Version 2)
Quarter: 2012Q4

REPORT INFORMATION
  Report Type: 
  Country: US (occurrence: US)
  Receive Date: 20120918
  Receipt Date: 20121206
  Transmission Date: 20130627
  Serious: Yes (Life-Threatening, Hospitalization, Other)
  Sender: FDA-Public Use
  Company Number: US-BAYER-2012-096418

PATIENT
  Age: 27 Year
  Sex: Female
  Weight: 72.56 kg

DRUGS (3)
  1. YAZ [Suspect]
     Indication: ACNE
     Dosage: UNK
     Dates: start: 20100420, end: 201008
  2. YASMIN [Suspect]
     Indication: ACNE
     Dosage: UNK
     Dates: start: 20031013, end: 20080124
  3. OCELLA [Suspect]
     Indication: ACNE
     Dosage: UNK
     Dates: start: 20080824, end: 20090701

REACTIONS (7)
  - Gallbladder disorder [None]
  - Ejection fraction decreased [None]
  - Injury [None]
  - Pain [None]
  - Anxiety [None]
  - Anhedonia [None]
  - Fear of disease [None]
